FAERS Safety Report 8018209-7 (Version None)
Quarter: 2011Q4

REPORT INFORMATION
  Report Type: 
  Country: None (occurrence: None)
  Receive Date: 20111228
  Receipt Date: 20111213
  Transmission Date: 20120403
  Serious: Yes (Hospitalization)
  Sender: FDA-Public Use
  Company Number: 1000026504

PATIENT
  Age: 78 Year
  Sex: Male
  Weight: 56 kg

DRUGS (7)
  1. SALMETEROL/FLUTICASONE (SALMETEROL, FLUTICASONE) (SALMETEROL, FLUTICAS [Concomitant]
  2. VIANI (SERETIDE) (SERETIDE) [Concomitant]
  3. ROFLUMILAST (ROFLUMILAST) (TABLETS) [Suspect]
     Indication: CHRONIC OBSTRUCTIVE PULMONARY DISEASE
     Dosage: 500 MCG (500 MCG, 1 IN 1 D), ORAL
     Route: 048
     Dates: start: 20110314, end: 20111001
  4. NIFEHEXAL (NIFEDIPINE) (NIFEDIPINE) [Concomitant]
  5. KINZALKOMB (TELMISARTAN, HYDROCHLOROTHIAZIDE) (TELMISARTAN, HYDROCHLOR [Concomitant]
  6. JODETTEN (POTASSIUM IODIDE) (POTASSIUM IODIDE) [Concomitant]
  7. SPIRIVA (TIOTROPIUM BROMIDE) (TIOTROPIUM BROMIDE) [Concomitant]

REACTIONS (7)
  - GENERAL PHYSICAL HEALTH DETERIORATION [None]
  - WEIGHT DECREASED [None]
  - ANAEMIA [None]
  - HAEMODIALYSIS [None]
  - RENAL FAILURE [None]
  - GOODPASTURE'S SYNDROME [None]
  - PYREXIA [None]
